FAERS Safety Report 5356921-9 (Version None)
Quarter: 2007Q2

REPORT INFORMATION
  Report Type: 
  Country: None (occurrence: None)
  Receive Date: 20070614
  Receipt Date: 20060921
  Transmission Date: 20071010
  Serious: No
  Sender: FDA-Public Use
  Company Number: US-ASTRAZENECA-2006UW18482

PATIENT
  Age: 63 Year
  Sex: Female
  Weight: 59.9 kg

DRUGS (3)
  1. ATACAND HCT [Suspect]
     Indication: HYPERTENSION
     Dosage: 32/12.5 MG
     Route: 048
     Dates: start: 20060920
  2. INDERAL [Concomitant]
  3. SYNTHROID [Concomitant]

REACTIONS (3)
  - DYSPEPSIA [None]
  - FATIGUE [None]
  - FLATULENCE [None]
